FAERS Safety Report 7564611-7 (Version None)
Quarter: 2011Q2

REPORT INFORMATION
  Report Type: 
  Country: None (occurrence: None)
  Receive Date: 20110622
  Receipt Date: 20100707
  Transmission Date: 20111010
  Serious: Yes (Other)
  Sender: FDA-Public Use
  Company Number: US-MYLANLABS-2010S1012182

PATIENT
  Age: 70 Year
  Sex: Female

DRUGS (14)
  1. SINEMET [Concomitant]
  2. DURAGESIC-100 [Concomitant]
  3. M.V.I. [Concomitant]
  4. LACTULOSE [Concomitant]
  5. LASIX [Concomitant]
  6. PRILOSEC [Concomitant]
  7. ASCORBIC ACID [Concomitant]
  8. COLACE [Concomitant]
  9. OXYCODONE HCL [Concomitant]
  10. VITAMIN D [Concomitant]
  11. ZINC [Concomitant]
  12. CLOZAPINE [Suspect]
     Route: 048
     Dates: end: 20100630
  13. POTASSIUM CHLORIDE [Concomitant]
  14. LEXAPRO [Concomitant]

REACTIONS (1)
  - GRANULOCYTOPENIA [None]
